FAERS Safety Report 25892975 (Version 1)
Quarter: 2025Q4

REPORT INFORMATION
  Report Type: Spontaneous
  Country: EU (occurrence: EU)
  Receive Date: 20251008
  Receipt Date: 20251008
  Transmission Date: 20260117
  Serious: Yes (Other)
  Sender: BAXTER
  Company Number: EU-MLMSERVICE-20250922-PI655588-00128-1

PATIENT
  Age: 70 Year
  Sex: Male

DRUGS (3)
  1. DOXORUBICIN [Suspect]
     Active Substance: DOXORUBICIN
     Indication: Leiomyosarcoma
     Dosage: THREE CYCLES OF NEOADJUVANT CHEMOTHERAPY
     Route: 065
     Dates: start: 202002, end: 202004
  2. DOXORUBICIN [Suspect]
     Active Substance: DOXORUBICIN
     Dosage: 60 MG/M2, MONO, 2 CYCLES, DOSE REDUCED
     Route: 065
     Dates: start: 202306, end: 202308
  3. IFOSFAMIDE [Suspect]
     Active Substance: IFOSFAMIDE
     Indication: Leiomyosarcoma
     Dosage: IFOSFAMIDE (5G/M2) VIA A PORT SYSTEM
     Route: 041
     Dates: start: 202002, end: 202004

REACTIONS (2)
  - Neurotoxicity [Unknown]
  - Disease progression [Unknown]

NARRATIVE: CASE EVENT DATE: 20200101
